FAERS Safety Report 6959610-X (Version None)
Quarter: 2010Q3

REPORT INFORMATION
  Report Type: 
  Country: None (occurrence: None)
  Receive Date: 20100827
  Receipt Date: 20100811
  Transmission Date: 20110219
  Serious: Yes (Hospitalization, Disabling)
  Sender: FDA-Public Use
  Company Number: 2008002821

PATIENT
  Age: 70 Year
  Sex: Male

DRUGS (8)
  1. ERLOTINIB HYDROCHLORIDE [Suspect]
     Indication: NON-SMALL CELL LUNG CANCER
     Dosage: 150 MG, QD, ORAL
     Route: 048
     Dates: start: 20080507
  2. BEVACIZUMAB (INJECTION FOR INFUSION) [Suspect]
     Dosage: 15 MG/KG, Q3W, INTRAVENOUS
     Route: 042
  3. OMEPRAZOLE [Concomitant]
  4. THEOPHYLLINE [Concomitant]
  5. METOCLOPRAMIDE [Concomitant]
  6. TIOTROPIUM BROMIDE [Concomitant]
  7. FORMOTEROL FUMARATE [Concomitant]
  8. ENALAPRIL MALEATE [Concomitant]

REACTIONS (1)
  - BLINDNESS [None]
